FAERS Safety Report 7647661-1 (Version None)
Quarter: 2011Q3

REPORT INFORMATION
  Report Type: 
  Country: None (occurrence: None)
  Receive Date: 20110801
  Receipt Date: 20110801
  Transmission Date: 20111222
  Serious: Yes (Other)
  Sender: FDA-Public Use
  Company Number: None

PATIENT
  Age: 39 Day
  Sex: Female
  Weight: 79.832 kg

DRUGS (3)
  1. ABILIFY [Suspect]
     Indication: SCHIZOPHRENIA
     Dosage: 5MG
     Route: 048
     Dates: start: 20110713, end: 20110729
  2. ABILIFY [Suspect]
     Indication: MAJOR DEPRESSION
     Dosage: 5MG
     Route: 048
     Dates: start: 20110713, end: 20110729
  3. ABILIFY [Suspect]
     Indication: BIPOLAR DISORDER
     Dosage: 5MG
     Route: 048
     Dates: start: 20110713, end: 20110729

REACTIONS (4)
  - MUSCULOSKELETAL STIFFNESS [None]
  - MIDDLE INSOMNIA [None]
  - DYSKINESIA [None]
  - CHEST PAIN [None]
